FAERS Safety Report 13648343 (Version 3)
Quarter: 2017Q2

REPORT INFORMATION
  Report Type: Report from Study
  Country: IL (occurrence: IL)
  Receive Date: 20170613
  Receipt Date: 20170621
  Transmission Date: 20170830
  Serious: Yes (Hospitalization)
  Sender: FDA-Public Use
  Company Number: IL-CELGENEUS-ISR-20170602150

PATIENT
  Age: 58 Year
  Sex: Male
  Weight: 110 kg

DRUGS (1)
  1. AZACITIDINE. [Suspect]
     Active Substance: AZACITIDINE
     Indication: MYELODYSPLASTIC SYNDROME
     Route: 058
     Dates: start: 20170228, end: 20170601

REACTIONS (1)
  - Arthritis reactive [Not Recovered/Not Resolved]

NARRATIVE: CASE EVENT DATE: 20170529
